FAERS Safety Report 8986141 (Version 1)
Quarter: 2012Q4

REPORT INFORMATION
  Report Type: Spontaneous
  Country: US (occurrence: None)
  Receive Date: 20121217
  Receipt Date: 20121217
  Transmission Date: 20130627
  Serious: Yes (Other)
  Sender: FDA-Public Use
  Company Number: 2012P1066712

PATIENT
  Age: 22 Year
  Sex: Female

DRUGS (2)
  1. FENTANYL (NO PREF. NAME) [Suspect]
  2. MIDAZOLAM HCL [Suspect]

REACTIONS (1)
  - Vocal cord paralysis [None]
